FAERS Safety Report 6158751-7 (Version None)
Quarter: 2009Q2

REPORT INFORMATION
  Report Type: 
  Country: None (occurrence: None)
  Receive Date: 20090417
  Receipt Date: 20090410
  Transmission Date: 20091009
  Serious: Yes (Other)
  Sender: FDA-Public Use
  Company Number: B0557923A

PATIENT
  Age: 44 Year
  Sex: Female

DRUGS (7)
  1. PAXIL [Suspect]
     Indication: DEPRESSION
     Dosage: 10MG PER DAY
     Route: 048
     Dates: start: 20090105, end: 20090116
  2. ZOMIG [Concomitant]
     Indication: MIGRAINE
     Route: 048
  3. HYPEN [Concomitant]
     Indication: ANALGESIA
     Route: 048
     Dates: start: 20090105
  4. MEILAX [Concomitant]
     Indication: MIGRAINE
     Dosage: 4MG PER DAY
     Route: 048
     Dates: start: 20090105
  5. NAUZELIN [Concomitant]
     Indication: NAUSEA
     Dosage: 10MG PER DAY
     Route: 048
     Dates: start: 20090105
  6. TOPINASAL [Concomitant]
     Indication: MIGRAINE
     Dosage: 50MG PER DAY
     Route: 048
     Dates: start: 20090105
  7. RIVOTRIL [Concomitant]
     Indication: MIGRAINE
     Dosage: .5MG PER DAY
     Route: 048
     Dates: start: 20090105

REACTIONS (3)
  - ABNORMAL BEHAVIOUR [None]
  - LOGORRHOEA [None]
  - MANIA [None]
